FAERS Safety Report 9926159 (Version 1)
Quarter: 2014Q1

REPORT INFORMATION
  Report Type: Spontaneous
  Country: FR (occurrence: FR)
  Receive Date: 20140226
  Receipt Date: 20140226
  Transmission Date: 20141002
  Serious: Yes (Life-Threatening, Other)
  Sender: FDA-Public Use
  Company Number: FR-B.I. PHARMACEUTICALS,INC./RIDGEFIELD-2014-RO-00260RO

PATIENT
  Age: 46 Year
  Sex: Female

DRUGS (2)
  1. METHADONE [Suspect]
     Indication: DRUG WITHDRAWAL MAINTENANCE THERAPY
     Dosage: 200 MG
     Route: 065
  2. DULCOLAX [Suspect]
     Indication: WEIGHT CONTROL
     Route: 065

REACTIONS (5)
  - Sudden death [Recovered/Resolved]
  - Torsade de pointes [Unknown]
  - Electrocardiogram QT prolonged [Unknown]
  - Left ventricular dysfunction [Unknown]
  - Hypokalaemia [Unknown]
